FAERS Safety Report 7542829-7 (Version None)
Quarter: 2011Q2

REPORT INFORMATION
  Report Type: 
  Country: None (occurrence: None)
  Receive Date: 20110524
  Receipt Date: 20110209
  Transmission Date: 20111010
  Serious: No
  Sender: FDA-Public Use
  Company Number: 019054

PATIENT
  Sex: Male
  Weight: 83.9 kg

DRUGS (13)
  1. CARVEDILOL [Concomitant]
  2. NEXIUM [Concomitant]
  3. POTASSIUM [Concomitant]
  4. CIMZIA [Suspect]
     Indication: CROHN'S DISEASE
     Dosage: (400 MG 1X/2 WEEKS, LOADING 0, 2 + 4 SUBCUTANEOUS)
     Route: 058
     Dates: start: 20100923
  5. LISINOPRIL AND HYDROCHLOROTHIAZIDE [Concomitant]
  6. INDOMETHACIN [Concomitant]
  7. VITAMIN B-12 [Concomitant]
  8. AMLODIPINE [Concomitant]
  9. FOLIC ACID [Concomitant]
  10. ASPIRIN [Concomitant]
  11. ENTOCORT EC [Concomitant]
  12. IMODIUM /00384302/ [Concomitant]
  13. FERROUS SULFATE TAB [Concomitant]

REACTIONS (4)
  - OROPHARYNGEAL PAIN [None]
  - RHINORRHOEA [None]
  - COUGH [None]
  - RESPIRATORY TRACT INFECTION [None]
